FAERS Safety Report 20143115 (Version 1)
Quarter: 2021Q4

REPORT INFORMATION
  Report Type: Spontaneous
  Country: US (occurrence: US)
  Receive Date: 20211203
  Receipt Date: 20211203
  Transmission Date: 20220303
  Serious: Yes (Hospitalization)
  Sender: FDA-Public Use
  Company Number: US-STRIDES ARCOLAB LIMITED-2021SP030507

PATIENT
  Age: 65 Year
  Sex: Female

DRUGS (4)
  1. PREDNISOLONE [Suspect]
     Active Substance: PREDNISOLONE
     Indication: Cholangitis
     Dosage: 40 MILLIGRAM/ DAY
     Route: 065
  2. PREDNISOLONE [Suspect]
     Active Substance: PREDNISOLONE
     Indication: Hepatitis
     Dosage: 60 MILLIGRAM/DAY
     Route: 065
  3. PEMBROLIZUMAB [Concomitant]
     Active Substance: PEMBROLIZUMAB
     Indication: Lung squamous cell carcinoma metastatic
     Dosage: UNK, 26 CYCLES
     Route: 065
  4. PEMBROLIZUMAB [Concomitant]
     Active Substance: PEMBROLIZUMAB
     Dosage: UNK
     Route: 065

REACTIONS (9)
  - Biliary obstruction [Unknown]
  - Bile duct stenosis [Unknown]
  - Cholangitis [Unknown]
  - Disease progression [Unknown]
  - Adrenal insufficiency [Unknown]
  - Abscess fungal [Unknown]
  - Fungaemia [Unknown]
  - Septic shock [Unknown]
  - Therapy partial responder [Unknown]
